FAERS Safety Report 6888857 (Version 12)
Quarter: 2013Q2

REPORT INFORMATION
  Report Type: Report from Study
  Country: DE (occurrence: DE)
  Receive Date: 20090122
  Receipt Date: 20130430
  Transmission Date: 20140414
  Serious: Yes (Life-Threatening, Hospitalization, Other)
  Sender: FDA-Public Use
  Company Number: DE-BIOGENIDEC-2009BI001630

PATIENT
  Age: 42 Year
  Sex: Female
  Weight: 65 kg

DRUGS (9)
  1. TYSABRI [Suspect]
     Indication: RELAPSING-REMITTING MULTIPLE SCLEROSIS
     Route: 042
     Dates: start: 20071212, end: 20081217
  2. PANTOPRAZOLE [Concomitant]
     Indication: GASTROINTESTINAL DISORDER
     Route: 048
     Dates: start: 2006
  3. BELOC ZOK MITE [Concomitant]
     Indication: CARDIOVASCULAR DISORDER
     Route: 048
  4. CALCIUM BT [Concomitant]
     Indication: OSTEOPOROSIS
  5. VIGANTOLETTEN [Concomitant]
     Indication: OSTEOPOROSIS
     Route: 048
  6. COTAZYM [Concomitant]
     Indication: PANCREATIC INSUFFICIENCY
     Route: 048
     Dates: start: 2006
  7. MINURIN [Concomitant]
     Indication: BLADDER DISORDER
     Dates: start: 2006
  8. EMSELEX [Concomitant]
     Indication: BLADDER DISORDER
     Route: 048
  9. EUGALAC [Concomitant]
     Indication: CONSTIPATION
     Route: 048

REACTIONS (3)
  - Progressive multifocal leukoencephalopathy [Recovered/Resolved]
  - Immune reconstitution inflammatory syndrome [Recovered/Resolved with Sequelae]
  - Body temperature increased [Recovered/Resolved]
